FAERS Safety Report 12082816 (Version 3)
Quarter: 2016Q4

REPORT INFORMATION
  Report Type: Report from Study
  Country: DE (occurrence: DE)
  Receive Date: 20160217
  Receipt Date: 20161107
  Transmission Date: 20170206
  Serious: Yes (Other)
  Sender: FDA-Public Use
  Company Number: PHHO2016DE001976

PATIENT
  Age: 56 Year
  Sex: Male
  Weight: 97 kg

DRUGS (4)
  1. AIN457 [Suspect]
     Active Substance: SECUKINUMAB
     Indication: PSORIASIS
     Dosage: 300 MG, UNK
     Route: 058
     Dates: start: 20151214, end: 20160208
  2. CANDECOR [Concomitant]
     Indication: HYPERTENSION
     Dosage: 16 MG, BID
     Route: 048
     Dates: start: 2005
  3. AIN457 [Suspect]
     Active Substance: SECUKINUMAB
     Dosage: 300 MG, UNK
     Route: 058
     Dates: start: 20160308
  4. NO TREATMENT RECEIVED [Suspect]
     Active Substance: UNSPECIFIED INGREDIENT
     Indication: PSORIASIS
     Dosage: NO TREATMENT
     Route: 065

REACTIONS (2)
  - Cardiac failure chronic [Recovered/Resolved]
  - Ventricular extrasystoles [Recovered/Resolved]

NARRATIVE: CASE EVENT DATE: 20160208
